FAERS Safety Report 23773966 (Version 1)
Quarter: 2024Q2

REPORT INFORMATION
  Report Type: Spontaneous
  Country: US (occurrence: None)
  Receive Date: 20240422
  Receipt Date: 20240422
  Transmission Date: 20240716
  Serious: Yes (Hospitalization)
  Sender: FDA-Public Use
  Company Number: None

PATIENT
  Age: 87 Year
  Sex: Male

DRUGS (1)
  1. VYNDAMAX [Suspect]
     Active Substance: TAFAMIDIS
     Indication: Cardiomyopathy
     Dosage: 61MG DAILY BY MOUTH?
     Route: 048
     Dates: start: 20230724

REACTIONS (3)
  - Dyspnoea [None]
  - Gait disturbance [None]
  - Pulmonary oedema [None]

NARRATIVE: CASE EVENT DATE: 20240409
